FAERS Safety Report 7758833-X (Version None)
Quarter: 2011Q3

REPORT INFORMATION
  Report Type: 
  Country: None (occurrence: None)
  Receive Date: 20110916
  Receipt Date: 20110916
  Transmission Date: 20111222
  Serious: Yes (Death)
  Sender: FDA-Public Use
  Company Number: None

PATIENT
  Age: 70 Year
  Sex: Male
  Weight: 135 kg

DRUGS (19)
  1. AVODART [Concomitant]
  2. CRESTOR [Concomitant]
  3. FOLIC ACID [Concomitant]
  4. HYDROCODONE-ACETOMINOPHEN [Concomitant]
  5. AMLODIPINE [Concomitant]
  6. TEMSIROLIMUS [Suspect]
     Indication: NON-SMALL CELL LUNG CANCER
     Dosage: 15 MG, WEEKLY, IV
     Route: 042
     Dates: start: 20110804
  7. TEMSIROLIMUS [Suspect]
     Indication: NON-SMALL CELL LUNG CANCER
     Dosage: 15 MG, WEEKLY, IV
     Route: 042
     Dates: start: 20110825
  8. ASPIRIN [Concomitant]
  9. VIOVAN [Concomitant]
  10. NIACIN [Concomitant]
  11. ONDANSETRON [Concomitant]
  12. PEMETREXED [Suspect]
     Indication: NON-SMALL CELL LUNG CANCER
     Dosage: 375 MG/M2, Q3 WEEKS, IV
     Route: 042
     Dates: start: 20110804
  13. PEMETREXED [Suspect]
     Indication: NON-SMALL CELL LUNG CANCER
     Dosage: 375 MG/M2, Q3 WEEKS, IV
     Route: 042
     Dates: start: 20110825
  14. LORAZEPAIN [Concomitant]
  15. METOPROLOL TARTRATE [Concomitant]
  16. OXYCODONE HCL [Concomitant]
  17. VITAMIN B-12 [Concomitant]
  18. COMBIVENT [Concomitant]
  19. NITROSTAT [Concomitant]

REACTIONS (4)
  - PULMONARY EMBOLISM [None]
  - PNEUMONIA ASPIRATION [None]
  - NON-SMALL CELL LUNG CANCER METASTATIC [None]
  - NEOPLASM PROGRESSION [None]
